FAERS Safety Report 16397831 (Version 1)
Quarter: 2019Q2

REPORT INFORMATION
  Report Type: Spontaneous
  Country: CN (occurrence: CN)
  Receive Date: 20190606
  Receipt Date: 20190606
  Transmission Date: 20190711
  Serious: Yes (Other)
  Sender: FDA-Public Use
  Company Number: CN-009507513-1905CHN013010

PATIENT
  Age: 92 Year
  Sex: Female
  Weight: 42 kg

DRUGS (1)
  1. TIENAM [Suspect]
     Active Substance: CILASTATIN SODIUM\IMIPENEM
     Indication: CHOLECYSTITIS INFECTIVE
     Dosage: 1 GRAM, QID, INTRAVENOUS GTT
     Route: 041
     Dates: start: 20190505, end: 20190507

REACTIONS (3)
  - Oxygen therapy [Unknown]
  - Chills [Recovering/Resolving]
  - Seizure [Recovering/Resolving]

NARRATIVE: CASE EVENT DATE: 20190507
